FAERS Safety Report 20192301 (Version 1)
Quarter: 2021Q4

REPORT INFORMATION
  Report Type: Spontaneous
  Country: PH (occurrence: PH)
  Receive Date: 20211216
  Receipt Date: 20211216
  Transmission Date: 20220303
  Serious: Yes (Hospitalization)
  Sender: FDA-Public Use
  Company Number: PH-ASTELLAS-2021US047992

PATIENT
  Sex: Male

DRUGS (1)
  1. XTANDI [Suspect]
     Active Substance: ENZALUTAMIDE
     Indication: Hormone-refractory prostate cancer
     Dosage: 4 DF, ONCE DAILY (4 CAPSULES PER DAY)
     Route: 065
     Dates: start: 20210909, end: 20211110

REACTIONS (2)
  - Respiratory disorder [Unknown]
  - Dysphagia [Unknown]
